FAERS Safety Report 6806629-5 (Version None)
Quarter: 2010Q2

REPORT INFORMATION
  Report Type: 
  Country: None (occurrence: None)
  Receive Date: 20100629
  Receipt Date: 20100622
  Transmission Date: 20101027
  Serious: Yes (Other)
  Sender: FDA-Public Use
  Company Number: RU-ABBOTT-10P-251-0649471-00

PATIENT
  Sex: Female
  Weight: 99 kg

DRUGS (1)
  1. LEUPRORELIN [Suspect]
     Indication: ENDOMETRIOSIS
     Route: 030
     Dates: start: 20100301

REACTIONS (1)
  - UTERINE HAEMORRHAGE [None]
